FAERS Safety Report 23393118 (Version 1)
Quarter: 2024Q1

REPORT INFORMATION
  Report Type: Spontaneous
  Country: US (occurrence: US)
  Receive Date: 20240111
  Receipt Date: 20240111
  Transmission Date: 20240410
  Serious: No
  Sender: FDA-Public Use
  Company Number: US-NOVOPROD-1107299

PATIENT
  Age: 52 Year
  Sex: Female

DRUGS (1)
  1. RYBELSUS [Suspect]
     Active Substance: SEMAGLUTIDE
     Indication: Type 2 diabetes mellitus
     Dosage: 7MG
     Route: 048
     Dates: start: 202301

REACTIONS (1)
  - Lethargy [Recovered/Resolved]

NARRATIVE: CASE EVENT DATE: 20230811
